FAERS Safety Report 4380806-8 (Version None)
Quarter: 2004Q2

REPORT INFORMATION
  Report Type: 
  Country: None (occurrence: None)
  Receive Date: 20040616
  Receipt Date: 20040604
  Transmission Date: 20050107
  Serious: Yes (Hospitalization, Other)
  Sender: FDA-Public Use
  Company Number: 2004034294

PATIENT
  Age: 63 Year
  Sex: Male

DRUGS (3)
  1. SULPERAZON (CEFOPERAZONE, SULBACTAM) [Suspect]
     Indication: CHOLECYSTITIS
     Dosage: 2 GRAM (1 GRAM, BID), INTRAVENOUS
     Route: 042
     Dates: start: 20040510, end: 20040520
  2. URSODEOXYCHOLIC ACID (URSODEOXYCHOLIC ACID) [Suspect]
     Indication: CHOLELITHIASIS
     Dosage: 600 MG (200 MG, TID),  ORAL
     Route: 048
     Dates: start: 20040517, end: 20040520
  3. MAGNESIUM OXIDE (MAGNESIUM OXIDE) [Suspect]
     Indication: CONSTIPATION
     Dosage: 990 MG (330 MG, TID), ORAL
     Route: 048
     Dates: start: 20040517, end: 20040520

REACTIONS (4)
  - CHOLESTASIS [None]
  - CONSTIPATION [None]
  - EXANTHEM [None]
  - PRURITUS [None]
